FAERS Safety Report 6691459-8 (Version None)
Quarter: 2010Q2

REPORT INFORMATION
  Report Type: 
  Country: None (occurrence: None)
  Receive Date: 20100422
  Receipt Date: 20100416
  Transmission Date: 20101027
  Serious: Yes (Death)
  Sender: FDA-Public Use
  Company Number: US-CELGENEUS-163-21880-10041497

PATIENT
  Sex: Female

DRUGS (3)
  1. REVLIMID [Suspect]
     Indication: MULTIPLE MYELOMA
     Route: 048
     Dates: start: 20100301, end: 20100101
  2. REVLIMID [Suspect]
     Dosage: 15-5MG
     Route: 048
     Dates: start: 20090701, end: 20090101
  3. REVLIMID [Suspect]
     Route: 048
     Dates: start: 20081001, end: 20090101

REACTIONS (2)
  - DEATH [None]
  - THROMBOCYTOPENIA [None]
